FAERS Safety Report 12173646 (Version 1)
Quarter: 2016Q1

REPORT INFORMATION
  Report Type: Spontaneous
  Country: US (occurrence: None)
  Receive Date: 20160311
  Receipt Date: 20160311
  Transmission Date: 20160526
  Serious: No
  Sender: FDA-Public Use
  Company Number: None

PATIENT
  Age: 66 Year
  Sex: Female

DRUGS (1)
  1. IMATINIB [Suspect]
     Active Substance: IMATINIB
     Indication: PRODUCT USED FOR UNKNOWN INDICATION
     Dosage: 100MG 3 TABS DAILY PO
     Route: 048
     Dates: start: 20160302, end: 20160309

REACTIONS (3)
  - Nausea [None]
  - Abdominal pain upper [None]
  - Product substitution issue [None]

NARRATIVE: CASE EVENT DATE: 20160309
